FAERS Safety Report 6378019-3 (Version None)
Quarter: 2009Q3

REPORT INFORMATION
  Report Type: 
  Country: None (occurrence: None)
  Receive Date: 20090925
  Receipt Date: 20090917
  Transmission Date: 20100115
  Serious: Yes (Hospitalization)
  Sender: FDA-Public Use
  Company Number: FR-ABBOTT-09P-056-0597865-00

PATIENT
  Sex: Female

DRUGS (9)
  1. DEPAKENE [Suspect]
     Indication: EPILEPSY
     Route: 048
  2. TEGRETOL [Suspect]
     Indication: EPILEPSY
     Route: 048
     Dates: end: 20081210
  3. NIMOTOP [Concomitant]
     Indication: PROPHYLAXIS
     Route: 048
  4. NIMOTOP [Concomitant]
     Indication: ANEURYSM
  5. SOLIAN [Concomitant]
     Indication: PSYCHOTIC DISORDER
     Route: 048
  6. TRANSIPEG [Concomitant]
     Indication: CONSTIPATION
     Route: 048
     Dates: end: 20081210
  7. LANSOYL [Concomitant]
     Indication: CONSTIPATION
     Route: 048
     Dates: end: 20081210
  8. ACETAMINOPHEN [Concomitant]
     Indication: PAIN
     Route: 048
     Dates: end: 20081210
  9. COVERSYL [Concomitant]
     Indication: HYPERTENSION
     Route: 048

REACTIONS (11)
  - CEREBRAL HAEMATOMA [None]
  - CONFUSIONAL STATE [None]
  - DRUG LEVEL INCREASED [None]
  - FACIAL PALSY [None]
  - FALL [None]
  - HYPERTHERMIA [None]
  - HYPOTENSION [None]
  - INTRACRANIAL ANEURYSM [None]
  - MENINGORRHAGIA [None]
  - TACHYCARDIA [None]
  - TOXIC ENCEPHALOPATHY [None]
